FAERS Safety Report 19495261 (Version 1)
Quarter: 2021Q3

REPORT INFORMATION
  Report Type: Other
  Country: CN (occurrence: CN)
  Receive Date: 20210705
  Receipt Date: 20210705
  Transmission Date: 20211014
  Serious: Yes (Other)
  Sender: FDA-Public Use
  Company Number: CN-ROCHE-2861832

PATIENT
  Age: 44 Year
  Sex: Female

DRUGS (8)
  1. BEVACIZUMAB. [Suspect]
     Active Substance: BEVACIZUMAB
     Indication: HER2 NEGATIVE BREAST CANCER
     Dosage: DAY1
     Route: 065
     Dates: start: 20080620
  2. BEVACIZUMAB. [Suspect]
     Active Substance: BEVACIZUMAB
     Dosage: DAY1
     Route: 065
     Dates: start: 200902
  3. COMPOUND RUTIN TABLETS [Concomitant]
  4. IODOPHOR [Concomitant]
     Active Substance: POVIDONE-IODINE
  5. DOCETAXEL. [Suspect]
     Active Substance: DOCETAXEL
     Dosage: DAY1
     Route: 065
     Dates: start: 200808
  6. BEVACIZUMAB. [Suspect]
     Active Substance: BEVACIZUMAB
     Dosage: DAY1
     Route: 065
     Dates: start: 200808
  7. DOCETAXEL. [Suspect]
     Active Substance: DOCETAXEL
     Indication: HER2 NEGATIVE BREAST CANCER
     Dosage: DAY1
     Route: 065
     Dates: start: 20080620
  8. CARBAZOCHROME [Concomitant]
     Active Substance: CARBAZOCHROME

REACTIONS (2)
  - Off label use [Unknown]
  - Nail toxicity [Recovered/Resolved]

NARRATIVE: CASE EVENT DATE: 200808
